FAERS Safety Report 9300228 (Version 2)
Quarter: 2013Q2

REPORT INFORMATION
  Report Type: Spontaneous
  Country: JP (occurrence: JP)
  Receive Date: 20130521
  Receipt Date: 20130619
  Transmission Date: 20140414
  Serious: Yes (Death, Other)
  Sender: FDA-Public Use
  Company Number: PHHY2013JP049370

PATIENT
  Sex: Female

DRUGS (2)
  1. EXJADE [Suspect]
     Indication: SERUM FERRITIN INCREASED
     Dosage: 1000 MG, QD
     Route: 048
     Dates: start: 201303, end: 201305
  2. VANCOMYCIN [Concomitant]

REACTIONS (3)
  - Cardiac siderosis [Fatal]
  - Cardiac failure [Fatal]
  - Condition aggravated [Unknown]
